FAERS Safety Report 23647045 (Version 1)
Quarter: 2024Q1

REPORT INFORMATION
  Report Type: Spontaneous
  Country: FR (occurrence: FR)
  Receive Date: 20240319
  Receipt Date: 20240319
  Transmission Date: 20240410
  Serious: Yes (Life-Threatening, Other)
  Sender: FDA-Public Use
  Company Number: None

PATIENT
  Age: 17 Year
  Sex: Female
  Weight: 54 kg

DRUGS (7)
  1. VENETOCLAX [Suspect]
     Active Substance: VENETOCLAX
     Indication: Chloroma
     Route: 048
     Dates: start: 20240206, end: 20240226
  2. VENETOCLAX [Suspect]
     Active Substance: VENETOCLAX
     Indication: Chloroma
     Route: 048
     Dates: start: 20240113, end: 20240113
  3. VENETOCLAX [Suspect]
     Active Substance: VENETOCLAX
     Indication: Chloroma
     Route: 048
     Dates: start: 20240115, end: 20240131
  4. VENETOCLAX [Suspect]
     Active Substance: VENETOCLAX
     Indication: Chloroma
     Route: 048
     Dates: start: 20240114, end: 20240114
  5. VIDAZA [Suspect]
     Active Substance: AZACITIDINE
     Indication: Chloroma
     Dosage: VIDAZA 100 MG, POUDRE POUR SUSPENSION INJECTABLE
     Route: 058
     Dates: start: 20240113, end: 20240119
  6. XOSPATA [Suspect]
     Active Substance: GILTERITINIB
     Indication: Chloroma
     Dosage: XOSPATA 40 MG, COMPRIM? PELLICUL?
     Route: 048
     Dates: start: 20240206, end: 20240226
  7. XOSPATA [Suspect]
     Active Substance: GILTERITINIB
     Indication: Chloroma
     Dosage: XOSPATA 40 MG, COMPRIM? PELLICUL?
     Route: 048
     Dates: start: 20240113, end: 20240131

REACTIONS (3)
  - Shock haemorrhagic [Recovered/Resolved]
  - Oesophageal ulcer [Recovered/Resolved]
  - Oesophagitis [Recovering/Resolving]

NARRATIVE: CASE EVENT DATE: 20240221
